FAERS Safety Report 11233914 (Version 1)
Quarter: 2015Q3

REPORT INFORMATION
  Report Type: Report from Study
  Country: JP (occurrence: JP)
  Receive Date: 20150702
  Receipt Date: 20150702
  Transmission Date: 20151125
  Serious: Yes (Death)
  Sender: FDA-Public Use
  Company Number: JP-TEVA-574202ISR

PATIENT

DRUGS (2)
  1. DOCETAXEL. [Suspect]
     Active Substance: DOCETAXEL
     Indication: NON-SMALL CELL LUNG CANCER
     Dosage: 20 MG/M2, CYCLIC (ON DAYS 1, 8, AND 15 EVERY 4 WEEKS)
     Route: 042
  2. CISPLATIN. [Suspect]
     Active Substance: CISPLATIN
     Indication: NON-SMALL CELL LUNG CANCER
     Dosage: 25 MG/M2, CYCLIC (ON DAYS 1, 8, AND 15 EVERY 4 WEEKS)
     Route: 042

REACTIONS (1)
  - Death [Fatal]
